FAERS Safety Report 10060766 (Version 1)
Quarter: 2014Q2

REPORT INFORMATION
  Report Type: Report from Study
  Country: AR (occurrence: AR)
  Receive Date: 20140404
  Receipt Date: 20140404
  Transmission Date: 20141212
  Serious: Yes (Hospitalization, Other)
  Sender: FDA-Public Use
  Company Number: AR-ABBVIE-14P-007-1219020-00

PATIENT
  Age: 43 Year
  Sex: Male

DRUGS (1)
  1. ZEMPLAR [Suspect]
     Indication: RENAL FAILURE CHRONIC
     Route: 048
     Dates: start: 20130801

REACTIONS (2)
  - Vascular rupture [Recovered/Resolved]
  - Procedural complication [Unknown]
